FAERS Safety Report 4851302-6 (Version None)
Quarter: 2005Q4

REPORT INFORMATION
  Report Type: 
  Country: None (occurrence: None)
  Receive Date: 20051209
  Receipt Date: 20051128
  Transmission Date: 20060501
  Serious: Yes (Death, Other)
  Sender: FDA-Public Use
  Company Number: USA-2005-0021764

PATIENT
  Age: 23 Year
  Sex: Male
  Weight: 77.1 kg

DRUGS (6)
  1. OXYCODONE HCL [Suspect]
  2. TRAMADOL HCL [Suspect]
  3. HYDROCODONE BITARTRATE [Suspect]
  4. ETHANOL (ETHANOL) [Suspect]
  5. DIAZEPAM [Suspect]
  6. COCAINE (COCAINE) [Suspect]

REACTIONS (24)
  - ABDOMINAL INJURY [None]
  - BLOOD ALCOHOL INCREASED [None]
  - CHEST INJURY [None]
  - CONTUSION [None]
  - EXCORIATION [None]
  - HAEMORRHAGE [None]
  - HAEMORRHAGE INTRACRANIAL [None]
  - INTESTINAL HAEMORRHAGE [None]
  - INTRACRANIAL INJURY [None]
  - LACERATION [None]
  - LUNG INJURY [None]
  - PELVIC FRACTURE [None]
  - POLYSUBSTANCE ABUSE [None]
  - POLYTRAUMATISM [None]
  - RADIUS FRACTURE [None]
  - RIB FRACTURE [None]
  - ROAD TRAFFIC ACCIDENT [None]
  - SKIN LACERATION [None]
  - SKULL FRACTURE [None]
  - SPLENIC HAEMORRHAGE [None]
  - SPLENIC RUPTURE [None]
  - SUBARACHNOID HAEMORRHAGE [None]
  - SUBDURAL HAEMORRHAGE [None]
  - ULNA FRACTURE [None]
